FAERS Safety Report 7078840-2 (Version None)
Quarter: 2010Q4

REPORT INFORMATION
  Report Type: 
  Country: None (occurrence: None)
  Receive Date: 20101102
  Receipt Date: 20101026
  Transmission Date: 20110411
  Serious: Yes (Hospitalization, Disabling, Other)
  Sender: FDA-Public Use
  Company Number: IN-B.I. PHARMACEUTICALS,INC./RIDGEFIELD-2010-DE-05871GD

PATIENT
  Age: 50 Year
  Sex: Male

DRUGS (9)
  1. TELMISARTAN [Suspect]
     Indication: HYPERTENSION
     Dosage: 40 MG
  2. AMLODIPINE [Suspect]
     Indication: HYPERTENSION
     Dosage: 5 MG
  3. MORPHINE [Concomitant]
     Indication: INDUCTION OF ANAESTHESIA
     Dosage: 5 MG
  4. THIOPENTAL SODIUM [Concomitant]
     Indication: INDUCTION OF ANAESTHESIA
     Dosage: 200 MG
  5. VECURONIUM BROMIDE [Concomitant]
     Indication: ENDOTRACHEAL INTUBATION
     Dosage: 5 MG
  6. N2O/O2 [Concomitant]
     Indication: MAINTENANCE OF ANAESTHESIA
     Dosage: RATIO 60:40
     Route: 055
  7. ISOFLURANE [Concomitant]
     Indication: MAINTENANCE OF ANAESTHESIA
     Route: 055
  8. NEOSTIGMINE [Concomitant]
     Indication: NEUROMUSCULAR BLOCKADE REVERSAL
  9. ATROPINE [Concomitant]
     Indication: NEUROMUSCULAR BLOCKADE REVERSAL

REACTIONS (5)
  - CONVULSION [None]
  - FACIAL PARESIS [None]
  - HEMIPARESIS [None]
  - ISCHAEMIC STROKE [None]
  - PROCEDURAL HYPOTENSION [None]
